FAERS Safety Report 11947936 (Version 1)
Quarter: 2016Q1

REPORT INFORMATION
  Report Type: Report from Study
  Country: BR (occurrence: BR)
  Receive Date: 20160125
  Receipt Date: 20160125
  Transmission Date: 20160526
  Serious: Yes (Death, Other)
  Sender: FDA-Public Use
  Company Number: BR-CELGENE-020-20785-10102819

PATIENT

DRUGS (9)
  1. PREDNISONE. [Suspect]
     Active Substance: PREDNISONE
     Indication: PLASMA CELL MYELOMA
     Dosage: 40 MILLIGRAM/SQ. METER
     Route: 065
  2. MELPHALAN [Suspect]
     Active Substance: MELPHALAN
     Indication: PLASMA CELL MYELOMA
     Dosage: 4 MILLIGRAM/SQ. METER
     Route: 048
  3. CYCLOPHOSPHAMIDE. [Suspect]
     Active Substance: CYCLOPHOSPHAMIDE
     Indication: PLASMA CELL MYELOMA
     Dosage: 50 MILLIGRAM
     Route: 048
  4. ASPIRIN. [Concomitant]
     Active Substance: ASPIRIN
     Indication: THROMBOSIS PROPHYLAXIS
     Route: 065
  5. THALOMID [Suspect]
     Active Substance: THALIDOMIDE
     Route: 048
  6. DEXAMETHASONE. [Suspect]
     Active Substance: DEXAMETHASONE
     Indication: PLASMA CELL MYELOMA
     Dosage: 40MG D1-4, 15-18 IN CYCLE 1+2, D1-4 IN CYCLE 3-9
     Route: 065
  7. DEXAMETHASONE. [Suspect]
     Active Substance: DEXAMETHASONE
     Dosage: 40MG D1-4, 9-12, 17-20 IN ODD CYCLES, D1-4 IN EVEN CYCLES
     Route: 065
  8. THALOMID [Suspect]
     Active Substance: THALIDOMIDE
     Indication: PLASMA CELL MYELOMA
     Route: 048
  9. SULPHATRIMETROPRIM [Concomitant]
     Indication: INFECTION
     Route: 065

REACTIONS (14)
  - Venous thrombosis [Unknown]
  - Anaemia [Unknown]
  - Hepatotoxicity [Fatal]
  - Tremor [Unknown]
  - Pneumonia [Unknown]
  - Myocardial infarction [Fatal]
  - Plasma cell myeloma [Unknown]
  - Neuropathy peripheral [Unknown]
  - Neutropenia [Unknown]
  - Febrile neutropenia [Unknown]
  - Constipation [Unknown]
  - Thrombocytopenia [Unknown]
  - Death [Fatal]
  - Infection [Fatal]
